FAERS Safety Report 21812522 (Version 2)
Quarter: 2023Q1

REPORT INFORMATION
  Report Type: Spontaneous
  Country: JP (occurrence: JP)
  Receive Date: 20230103
  Receipt Date: 20230113
  Transmission Date: 20230417
  Serious: Yes (Hospitalization, Congenital Anomaly)
  Sender: FDA-Public Use
  Company Number: JP-TEVA-2022-JP-2842226

PATIENT
  Age: 79 Year
  Sex: Female
  Weight: 45 kg

DRUGS (5)
  1. LETROZOLE [Suspect]
     Active Substance: LETROZOLE
     Indication: Breast cancer metastatic
     Route: 065
  2. ZOLEDRONIC ACID [Suspect]
     Active Substance: ZOLEDRONIC ACID
     Indication: Metastases to bone
     Dosage: 4 MG/MONTH
     Route: 065
  3. PERTUZUMAB [Suspect]
     Active Substance: PERTUZUMAB
     Indication: Breast cancer metastatic
     Route: 065
  4. TRASTUZUMAB [Suspect]
     Active Substance: TRASTUZUMAB
     Indication: Breast cancer metastatic
     Route: 065
  5. DOCETAXEL [Suspect]
     Active Substance: DOCETAXEL
     Indication: Breast cancer metastatic
     Route: 065

REACTIONS (8)
  - Fanconi syndrome [Recovering/Resolving]
  - Toxicity to various agents [Recovering/Resolving]
  - Hypophosphataemic osteomalacia [Recovering/Resolving]
  - Chronic kidney disease [Recovering/Resolving]
  - Spinal fracture [Unknown]
  - Hypokalaemia [Recovering/Resolving]
  - Renal impairment [Recovering/Resolving]
  - Metabolic acidosis [Recovering/Resolving]
